FAERS Safety Report 7875492-6 (Version None)
Quarter: 2011Q4

REPORT INFORMATION
  Report Type: 
  Country: None (occurrence: None)
  Receive Date: 20111031
  Receipt Date: 20111024
  Transmission Date: 20120403
  Serious: Yes (Hospitalization, Other)
  Sender: FDA-Public Use
  Company Number: PHHY2011US12268

PATIENT
  Sex: Male
  Weight: 92.7 kg

DRUGS (5)
  1. CALCIUM WITH VITAMIN D [Concomitant]
     Route: 048
  2. EXJADE [Suspect]
     Indication: SERUM FERRITIN INCREASED
     Dosage: 500 MG, QD
     Route: 048
     Dates: start: 20110101
  3. CYCLOSPORINE [Concomitant]
     Indication: CHRONIC LYMPHOCYTIC LEUKAEMIA
     Dosage: 125 MG, Q12H
     Route: 048
     Dates: start: 20101108
  4. EXJADE [Suspect]
     Indication: MULTIPLE MYELOMA
     Dosage: 2000 MG, QD
     Route: 048
     Dates: start: 20110104
  5. PREDNISOLONE [Concomitant]
     Indication: CHRONIC LYMPHOCYTIC LEUKAEMIA
     Dosage: 10 MG, QD
     Route: 048
     Dates: start: 20100716

REACTIONS (9)
  - INFECTION [None]
  - DECREASED APPETITE [None]
  - JOINT SWELLING [None]
  - GENERAL PHYSICAL CONDITION ABNORMAL [None]
  - VOMITING [None]
  - ARTHRALGIA [None]
  - EPIGASTRIC DISCOMFORT [None]
  - NAUSEA [None]
  - DIARRHOEA [None]
